FAERS Safety Report 16379319 (Version 2)
Quarter: 2019Q2

REPORT INFORMATION
  Report Type: Spontaneous
  Country: US (occurrence: US)
  Receive Date: 20190531
  Receipt Date: 20190619
  Transmission Date: 20190711
  Serious: Yes (Life-Threatening, Hospitalization)
  Sender: FDA-Public Use
  Company Number: US-ACTELION-A-NJ2019-191034

PATIENT
  Age: 2 Year
  Sex: Male

DRUGS (4)
  1. LASIX [Concomitant]
     Active Substance: FUROSEMIDE
     Dosage: 6 MG
  2. TRACLEER [Suspect]
     Active Substance: BOSENTAN
     Dosage: 18 MG
     Route: 048
  3. POLY-VI-SOL [Concomitant]
     Active Substance: VITAMINS
     Dosage: 1 ML
  4. TRACLEER [Suspect]
     Active Substance: BOSENTAN
     Indication: PULMONARY ARTERIAL HYPERTENSION
     Dosage: 17.92 MG, BID
     Route: 048
     Dates: start: 20190118

REACTIONS (2)
  - Tracheostomy [Unknown]
  - Respiratory distress [Unknown]

NARRATIVE: CASE EVENT DATE: 20190521
